FAERS Safety Report 26162769 (Version 2)
Quarter: 2025Q4

REPORT INFORMATION
  Report Type: Spontaneous
  Country: US (occurrence: US)
  Receive Date: 20251216
  Receipt Date: 20251222
  Transmission Date: 20260118
  Serious: Yes (Death, Hospitalization)
  Sender: CHIMERIX
  Company Number: US-CHIMERIX, INC.-US-CHI-25-000623

PATIENT
  Sex: Male

DRUGS (1)
  1. MODEYSO [Suspect]
     Active Substance: DORDAVIPRONE
     Indication: Brain stem glioma
     Dosage: UNK
     Dates: end: 20251119

REACTIONS (2)
  - Neoplasm progression [Fatal]
  - Hospitalisation [Unknown]
